FAERS Safety Report 19255095 (Version 3)
Quarter: 2021Q2

REPORT INFORMATION
  Report Type: Spontaneous
  Country: CA (occurrence: CA)
  Receive Date: 20210513
  Receipt Date: 20210526
  Transmission Date: 20210717
  Serious: Yes (Other)
  Sender: FDA-Public Use
  Company Number: CA-PFIZER INC-2021454668

PATIENT
  Age: 24 Year
  Sex: Male

DRUGS (3)
  1. XELJANZ [Suspect]
     Active Substance: TOFACITINIB CITRATE
     Indication: COLITIS ULCERATIVE
     Dosage: 10 MG, 2X/DAY
     Route: 048
     Dates: start: 20210417
  2. ENTYVIO [Concomitant]
     Active Substance: VEDOLIZUMAB
     Dosage: UNK
  3. ENTYVIO [Concomitant]
     Active Substance: VEDOLIZUMAB
     Dosage: 1 DF, DOSAGE INFORMATION NOT AVAILABLE
     Dates: start: 20210304

REACTIONS (12)
  - Constipation [Unknown]
  - Product use issue [Unknown]
  - Haemorrhage [Unknown]
  - Flatulence [Recovering/Resolving]
  - Fatigue [Unknown]
  - Rectal haemorrhage [Unknown]
  - Increased appetite [Unknown]
  - Infrequent bowel movements [Unknown]
  - Muscle spasms [Not Recovered/Not Resolved]
  - Pain [Unknown]
  - Pruritus [Not Recovered/Not Resolved]
  - Off label use [Unknown]

NARRATIVE: CASE EVENT DATE: 202104
